FAERS Safety Report 17489058 (Version 1)
Quarter: 2020Q1

REPORT INFORMATION
  Report Type: Spontaneous
  Country: US (occurrence: US)
  Receive Date: 20200303
  Receipt Date: 20200303
  Transmission Date: 20200409
  Serious: Yes (Other)
  Sender: FDA-Public Use
  Company Number: None

PATIENT
  Sex: Female

DRUGS (2)
  1. MESALAMINE. [Suspect]
     Active Substance: MESALAMINE
  2. ASACOL [Suspect]
     Active Substance: MESALAMINE

REACTIONS (3)
  - Headache [None]
  - Abdominal pain upper [None]
  - Anal incontinence [None]
